FAERS Safety Report 4385463-2 (Version None)
Quarter: 2004Q2

REPORT INFORMATION
  Report Type: 
  Country: None (occurrence: None)
  Receive Date: 20040624
  Receipt Date: 20040608
  Transmission Date: 20050107
  Serious: Yes (Hospitalization)
  Sender: FDA-Public Use
  Company Number: T04-USA-01873-01

PATIENT
  Age: 80 Year
  Sex: Male
  Weight: 63.6397 kg

DRUGS (16)
  1. MEMANTINE (OPEN LABEL, PHASE D) (MEMANTINE) [Suspect]
     Indication: DEMENTIA ALZHEIMER'S TYPE
     Dosage: 20 MG QD PO
     Route: 048
     Dates: start: 20030324
  2. MEMANTINE (OPEN LABEL, PHASE C) (MEMANTINE) [Suspect]
     Indication: DEMENTIA ALZHEIMER'S TYPE
     Dosage: 20 MG QD PO
     Route: 048
     Dates: start: 20030311, end: 20040324
  3. MEMANTINE (OPEN LABEL, PHASE B) (MEMANTINE) [Suspect]
     Indication: DEMENTIA ALZHEIMER'S TYPE
     Dosage: 20 MG QD PO
     Route: 048
     Dates: start: 20021022, end: 20030311
  4. MEMANTINE HCL [Suspect]
     Indication: DEMENTIA ALZHEIMER'S TYPE
     Dosage: 2 TABLET BID PO
     Route: 048
     Dates: start: 20020827, end: 20021022
  5. VITAMIN E (VEGETABLE OIL) [Concomitant]
  6. GINKGO BILOBA [Concomitant]
  7. ACETYLSALICYLIC ACID SRT [Concomitant]
  8. METAMUCIL ^PROCTER + GAMBLE^ [Concomitant]
  9. MAALOX [Concomitant]
  10. GINSENG [Concomitant]
  11. NEXIUM [Concomitant]
  12. CIPROFLOXACIN XR (CIPROFLOXACIN) [Concomitant]
  13. MACROBID [Concomitant]
  14. DETROL [Concomitant]
  15. FLOMAX ^BOEHRINGER INGELHEIM^ (TAMSULOSIN HYDROCHLORIDE) [Concomitant]
  16. VITAMIN C [Concomitant]

REACTIONS (11)
  - BLADDER CANCER STAGE III [None]
  - CONSTIPATION [None]
  - DRUG INEFFECTIVE [None]
  - HAEMATURIA [None]
  - MOOD SWINGS [None]
  - PROTEIN URINE PRESENT [None]
  - STOMACH DISCOMFORT [None]
  - URINARY TRACT INFECTION [None]
  - URINE KETONE BODY PRESENT [None]
  - VISUAL FIELD DEFECT [None]
  - WHITE BLOOD CELLS URINE POSITIVE [None]
